FAERS Safety Report 8804893 (Version 2)
Quarter: 2012Q4

REPORT INFORMATION
  Report Type: 
  Country: US (occurrence: US)
  Receive Date: 20120924
  Receipt Date: 20120927
  Transmission Date: 20130627
  Serious: Yes (Death, Hospitalization)
  Sender: FDA-Public Use
  Company Number: US-ROCHE-1098276

PATIENT
  Sex: Female

DRUGS (14)
  1. AVASTIN [Suspect]
     Indication: RECTOSIGMOID CANCER
     Route: 065
     Dates: start: 200404
  2. AVASTIN [Suspect]
     Route: 065
     Dates: start: 200412
  3. AVASTIN [Suspect]
     Route: 065
     Dates: start: 20050803
  4. XELODA [Suspect]
     Indication: PRODUCT USED FOR UNKNOWN INDICATION
     Route: 065
     Dates: start: 200407
  5. OXALIPLATIN [Concomitant]
     Route: 065
     Dates: start: 200401
  6. 5-FU [Concomitant]
     Route: 065
     Dates: start: 200401
  7. 5-FU [Concomitant]
     Route: 065
     Dates: start: 200404
  8. 5-FU [Concomitant]
     Route: 065
     Dates: start: 200412
  9. LEUCOVORIN [Concomitant]
     Route: 065
     Dates: start: 200401
  10. LEUCOVORIN [Concomitant]
     Route: 065
     Dates: start: 200412
  11. IRINOTECAN [Concomitant]
     Route: 065
     Dates: start: 200404
  12. IRINOTECAN [Concomitant]
     Route: 065
     Dates: start: 200412
  13. ERBITUX [Concomitant]
  14. CELEXA [Concomitant]

REACTIONS (3)
  - Death [Fatal]
  - Diarrhoea [Recovering/Resolving]
  - Disease progression [Unknown]
